FAERS Safety Report 16243776 (Version 1)
Quarter: 2019Q2

REPORT INFORMATION
  Report Type: Spontaneous
  Country: US (occurrence: US)
  Receive Date: 20190425
  Receipt Date: 20190425
  Transmission Date: 20190711
  Serious: Yes (Disabling)
  Sender: FDA-Public Use
  Company Number: None

PATIENT
  Age: 67 Year
  Sex: Female
  Weight: 70.2 kg

DRUGS (1)
  1. LEVAQUIN [Suspect]
     Active Substance: LEVOFLOXACIN
     Indication: PNEUMONIA
     Route: 048
     Dates: start: 20190220, end: 20190224

REACTIONS (4)
  - Musculoskeletal pain [None]
  - Loss of personal independence in daily activities [None]
  - Hypokinesia [None]
  - Tendon pain [None]

NARRATIVE: CASE EVENT DATE: 20190220
